FAERS Safety Report 7064817-X (Version None)
Quarter: 2010Q4

REPORT INFORMATION
  Report Type: 
  Country: None (occurrence: None)
  Receive Date: 20101022
  Receipt Date: 20101022
  Transmission Date: 20110411
  Serious: No
  Sender: FDA-Public Use
  Company Number: None

PATIENT
  Age: 57 Year
  Sex: Female
  Weight: 77.1115 kg

DRUGS (1)
  1. LEVAQUIN [Suspect]
     Indication: BRONCHITIS
     Dosage: 250MG 1X DAILY 10 DAILY PO
     Route: 048
     Dates: start: 20100916, end: 20100926

REACTIONS (3)
  - ABASIA [None]
  - NO THERAPEUTIC RESPONSE [None]
  - TENDON DISORDER [None]
